FAERS Safety Report 4699070-5 (Version None)
Quarter: 2005Q2

REPORT INFORMATION
  Report Type: 
  Country: None (occurrence: None)
  Receive Date: 20050622
  Receipt Date: 20050622
  Transmission Date: 20051028
  Serious: Yes (Other)
  Sender: FDA-Public Use
  Company Number: None

PATIENT
  Age: 84 Year
  Sex: Male
  Weight: 96.1626 kg

DRUGS (8)
  1. ZITHROMAX [Suspect]
     Indication: CHRONIC OBSTRUCTIVE AIRWAYS DISEASE EXACERBATED
     Dosage: Z PACK DOSING
     Dates: start: 20050521, end: 20050525
  2. ZITHROMAX [Suspect]
     Indication: PNEUMONIA
     Dosage: Z PACK DOSING
     Dates: start: 20050521, end: 20050525
  3. FUROSEMIDE [Concomitant]
  4. METOPROLOL [Concomitant]
  5. GLIPIZIDE [Concomitant]
  6. GLUCOSAMINE [Concomitant]
  7. ALBUTEROL [Concomitant]
  8. NASAREL [Concomitant]

REACTIONS (2)
  - CONDITION AGGRAVATED [None]
  - DEAFNESS [None]
